FAERS Safety Report 17332270 (Version 10)
Quarter: 2021Q2

REPORT INFORMATION
  Report Type: Report from Study
  Country: None (occurrence: JP)
  Receive Date: 20200127
  Receipt Date: 20210409
  Transmission Date: 20210716
  Serious: Yes (Hospitalization)
  Sender: FDA-Public Use
  Company Number: JP-ABBVIE-20K-087-3244268-00

PATIENT
  Age: 47 Year
  Sex: Male
  Weight: 80 kg

DRUGS (18)
  1. DUODOPA [Suspect]
     Active Substance: CARBIDOPA\LEVODOPA
     Dosage: MD: 6 ML?CD: 0.6 ML/HR X 16 HRS?ED: 1 ML/UNIT X 2
     Route: 050
     Dates: start: 20190118, end: 20190119
  2. DUODOPA [Suspect]
     Active Substance: CARBIDOPA\LEVODOPA
     Dosage: MD: 9 ML?CD: 1.0 ML/HR X 16 HRS?ED: 1.0 ML/UNIT X 2
     Route: 050
     Dates: start: 20190210, end: 20190212
  3. DUODOPA [Suspect]
     Active Substance: CARBIDOPA\LEVODOPA
     Dosage: CD: 3.3 ML/HR X 16 HRS?ED: 2.1 ML/UNIT X 5 TIMES?MD: 8 ML
     Route: 050
     Dates: start: 20190626, end: 20190718
  4. CARBIDOPA AND LEVODOPA [Concomitant]
     Active Substance: CARBIDOPA\LEVODOPA
     Indication: PARKINSON^S DISEASE
     Route: 048
  5. DUODOPA [Suspect]
     Active Substance: CARBIDOPA\LEVODOPA
     Indication: PARKINSON^S DISEASE
     Dosage: MD: 8 ML?CD: 3 ML/HR X 16 HRS?ED: 1 ML/UNIT X 2
     Route: 050
     Dates: start: 20190112, end: 20190114
  6. DUODOPA [Suspect]
     Active Substance: CARBIDOPA\LEVODOPA
     Dosage: MD: 9 ML?CD: 0.6 ML/HR X 16 HRS?ED: 0.7 ML/UNIT X 2
     Route: 050
     Dates: start: 20190122, end: 20190207
  7. DUODOPA [Suspect]
     Active Substance: CARBIDOPA\LEVODOPA
     Dosage: MD: 9 ML?CD: 1.2 ML/HR X 16 HRS?ED: 1.2 ML/UNIT X 2
     Route: 050
     Dates: start: 20190212, end: 20190212
  8. DUODOPA [Suspect]
     Active Substance: CARBIDOPA\LEVODOPA
     Dosage: MD: 9 ML?CD: 0.8 ML/HR X 16 HRS?ED: 0.7 ML/UNIT X 2
     Route: 050
     Dates: start: 20190207, end: 20190208
  9. DUODOPA [Suspect]
     Active Substance: CARBIDOPA\LEVODOPA
     Dosage: MD: 9 ML?CD: 1.5 ML/HR X 16 HRS?ED: 1.5 ML/UNIT X 1
     Route: 050
     Dates: start: 20190212, end: 20190213
  10. DUODOPA [Suspect]
     Active Substance: CARBIDOPA\LEVODOPA
     Dosage: CD: 3.3 ML/HR X 16 HRS ED: 2.1 ML/UNIT X 5 MD: 8 ML
     Route: 050
     Dates: start: 20190722, end: 20200325
  11. ENTACAPONE. [Concomitant]
     Active Substance: ENTACAPONE
     Indication: PARKINSON^S DISEASE
     Route: 048
     Dates: start: 20190124
  12. DUODOPA [Suspect]
     Active Substance: CARBIDOPA\LEVODOPA
     Dosage: MD: 7 ML?CD: 0.7 ML/HR X 16 HRS?ED: 0.5 ML/UNIT X 2
     Route: 050
     Dates: start: 20190119, end: 20190122
  13. DUODOPA [Suspect]
     Active Substance: CARBIDOPA\LEVODOPA
     Dosage: MD: 9 ML?CD: 1.8 ML/HR X 16 HRS?ED: 1.5 ML/UNIT X 2
     Route: 050
     Dates: start: 20190213, end: 20190214
  14. DUODOPA [Suspect]
     Active Substance: CARBIDOPA\LEVODOPA
     Dosage: MD: 9 ML?CD: 2.1 ML/HR X 16 HRS?ED: 1.5 ML/UNIT X 2
     Route: 050
     Dates: start: 20190214, end: 20190626
  15. DUODOPA [Suspect]
     Active Substance: CARBIDOPA\LEVODOPA
     Dosage: MD: 8 ML?CD: 2.6 ML/HR X 16 HRS?ED: 1 ML/UNIT
     Route: 050
     Dates: start: 20190114, end: 20190114
  16. DUODOPA [Suspect]
     Active Substance: CARBIDOPA\LEVODOPA
     Dosage: MD: 9 ML?CD: 0.9 ML/HR X 16 HRS?ED: 0.7 ML/UNIT X 2
     Route: 050
     Dates: start: 20190209, end: 20190210
  17. CARBIDOPA AND LEVODOPA [Concomitant]
     Active Substance: CARBIDOPA\LEVODOPA
     Route: 048
     Dates: start: 20190124
  18. ROTIGOTINE [Concomitant]
     Active Substance: ROTIGOTINE
     Indication: PARKINSON^S DISEASE
     Route: 062
     Dates: start: 20190115

REACTIONS (6)
  - Abdominal pain [Recovered/Resolved]
  - Device kink [Recovered/Resolved]
  - Bezoar [Recovered/Resolved]
  - Mobility decreased [Unknown]
  - Dyskinesia [Recovered/Resolved]
  - Duodenal ulcer [Recovered/Resolved]

NARRATIVE: CASE EVENT DATE: 20190113
